FAERS Safety Report 5485686-5 (Version None)
Quarter: 2007Q4

REPORT INFORMATION
  Report Type: 
  Country: None (occurrence: None)
  Receive Date: 20071015
  Receipt Date: 20071010
  Transmission Date: 20080405
  Serious: Yes (Hospitalization)
  Sender: FDA-Public Use
  Company Number: FR-MERCK-0710FRA00037

PATIENT
  Age: 58 Year
  Sex: Male

DRUGS (5)
  1. ZOCOR [Suspect]
     Indication: HYPERCHOLESTEROLAEMIA
     Route: 048
     Dates: end: 20041101
  2. DILTIAZEM HYDROCHLORIDE [Concomitant]
     Route: 048
  3. DIGOXIN [Concomitant]
     Route: 048
  4. OMEPRAZOLE [Concomitant]
     Route: 048
  5. FLUINDIONE [Concomitant]
     Indication: MITRAL VALVE REPLACEMENT
     Route: 048

REACTIONS (1)
  - INTERSTITIAL LUNG DISEASE [None]
